FAERS Safety Report 5392180-9 (Version None)
Quarter: 2007Q3

REPORT INFORMATION
  Report Type: 
  Country: None (occurrence: None)
  Receive Date: 20070717
  Receipt Date: 20070717
  Transmission Date: 20080115
  Serious: Yes (Life-Threatening, Hospitalization)
  Sender: FDA-Public Use
  Company Number: None

PATIENT
  Age: 38 Year
  Sex: Female

DRUGS (1)
  1. BYETTA [Suspect]
     Dosage: 5MCG BID SQ
     Route: 058

REACTIONS (1)
  - ANAPHYLACTIC REACTION [None]
